FAERS Safety Report 8621459-X (Version None)
Quarter: 2012Q3

REPORT INFORMATION
  Report Type: 
  Country: None (occurrence: None)
  Receive Date: 20120824
  Receipt Date: 20120815
  Transmission Date: 20120928
  Serious: Yes (Other)
  Sender: FDA-Public Use
  Company Number: US-ASTRAZENECA-2012SE57812

PATIENT
  Age: 81 Year
  Sex: Male

DRUGS (3)
  1. NEXIUM [Suspect]
     Route: 048
     Dates: start: 20120701
  2. OMEPRAZOLE [Suspect]
     Route: 048
  3. ZANTAC [Concomitant]

REACTIONS (5)
  - CEREBROVASCULAR ACCIDENT [None]
  - CATARACT [None]
  - INTENTIONAL DRUG MISUSE [None]
  - ULCER [None]
  - DIABETES MELLITUS [None]
